FAERS Safety Report 4490267-6 (Version None)
Quarter: 2004Q4

REPORT INFORMATION
  Report Type: 
  Country: None (occurrence: None)
  Receive Date: 20041028
  Receipt Date: 20041015
  Transmission Date: 20050328
  Serious: Yes (Other)
  Sender: FDA-Public Use
  Company Number: 2004-09-1130

PATIENT
  Age: 50 Year
  Sex: Female
  Weight: 138 kg

DRUGS (3)
  1. CLARITIN-D [Suspect]
     Indication: SINUS CONGESTION
     Dosage: ONE TAB ORAL
     Route: 048
     Dates: start: 20040916, end: 20040916
  2. DILANTIN [Concomitant]
  3. LEXAPRO [Concomitant]

REACTIONS (2)
  - CONVULSION [None]
  - HEART RATE INCREASED [None]
